FAERS Safety Report 9114487 (Version 1)
Quarter: 2013Q1

REPORT INFORMATION
  Report Type: Spontaneous
  Country: US (occurrence: US)
  Receive Date: 20130208
  Receipt Date: 20130208
  Transmission Date: 20140127
  Serious: No
  Sender: FDA-Public Use
  Company Number: US-TEVA-384173USA

PATIENT
  Age: 34 Year
  Sex: Female
  Weight: 54.48 kg

DRUGS (3)
  1. PLAN B ONE-STEP [Suspect]
     Indication: POST COITAL CONTRACEPTION
     Dosage: 1.5 MILLIGRAM DAILY;
     Route: 048
     Dates: start: 20130114, end: 20130114
  2. ALPRAZOLAM [Concomitant]
     Indication: ANXIETY
  3. ALPRAZOLAM [Concomitant]
     Indication: INSOMNIA

REACTIONS (1)
  - Metrorrhagia [Not Recovered/Not Resolved]
